FAERS Safety Report 5721399-X (Version None)
Quarter: 2008Q2

REPORT INFORMATION
  Report Type: 
  Country: None (occurrence: None)
  Receive Date: 20080428
  Receipt Date: 20080428
  Transmission Date: 20081010
  Serious: Yes (Hospitalization)
  Sender: FDA-Public Use
  Company Number: None

PATIENT
  Age: 77 Year
  Sex: Female

DRUGS (6)
  1. FENTANYL-100 [Suspect]
     Indication: PAIN
  2. PREGABALIN [Suspect]
     Indication: PAIN
  3. MECLIZINE [Suspect]
     Indication: ANXIETY
  4. MECLIZINE [Suspect]
     Indication: DEPRESSION
  5. CLONAZEPAM [Suspect]
     Indication: ANXIETY
  6. CLONAZEPAM [Suspect]
     Indication: DEPRESSION

REACTIONS (7)
  - ASTHENIA [None]
  - CONFUSIONAL STATE [None]
  - DELIRIUM [None]
  - FATIGUE [None]
  - HYPOTENSION [None]
  - MUSCLE TWITCHING [None]
  - MUSCULAR WEAKNESS [None]
